FAERS Safety Report 15008742 (Version 2)
Quarter: 2018Q2

REPORT INFORMATION
  Report Type: Spontaneous
  Country: US (occurrence: US)
  Receive Date: 20180613
  Receipt Date: 20180621
  Transmission Date: 20180711
  Serious: Yes (Disabling, Other)
  Sender: FDA-Public Use
  Company Number: US-OTSUKA-2018_015522

PATIENT
  Sex: Male

DRUGS (1)
  1. ABILIFY [Suspect]
     Active Substance: ARIPIPRAZOLE
     Indication: BIPOLAR DISORDER
     Dosage: 10 MG, QD
     Route: 065
     Dates: start: 2010, end: 2017

REACTIONS (14)
  - Eating disorder [Recovered/Resolved]
  - Weight increased [Unknown]
  - Condition aggravated [Unknown]
  - Compulsive hoarding [Recovered/Resolved]
  - Emotional distress [Unknown]
  - Theft [Unknown]
  - Economic problem [Unknown]
  - Injury [Unknown]
  - Pain [Unknown]
  - Compulsive shopping [Recovered/Resolved]
  - Anhedonia [Unknown]
  - Shoplifting [Unknown]
  - Disability [Unknown]
  - Anxiety [Unknown]
